FAERS Safety Report 21565799 (Version 1)
Quarter: 2022Q4

REPORT INFORMATION
  Report Type: Spontaneous
  Country: US (occurrence: None)
  Receive Date: 20221107
  Receipt Date: 20221107
  Transmission Date: 20230113
  Serious: Yes (Other)
  Sender: FDA-Public Use
  Company Number: None

PATIENT
  Age: 72 Year
  Sex: Male
  Weight: 56.25 kg

DRUGS (20)
  1. CLOPIDOGREL [Suspect]
     Active Substance: CLOPIDOGREL BISULFATE
     Indication: Myocardial infarction
     Dosage: OTHER QUANTITY : 1 TABLET(S);?FREQUENCY : DAILY;?
     Route: 048
  2. OMEPRAZOLE [Concomitant]
     Active Substance: OMEPRAZOLE
  3. IRON [Concomitant]
     Active Substance: IRON
  4. ROSUVASTATIN [Concomitant]
     Active Substance: ROSUVASTATIN
  5. METFORMIN [Concomitant]
     Active Substance: METFORMIN HYDROCHLORIDE
  6. EZETIMIBE [Concomitant]
     Active Substance: EZETIMIBE
  7. FINASTERIDE [Concomitant]
     Active Substance: FINASTERIDE
  8. LOSARTAN [Concomitant]
     Active Substance: LOSARTAN
  9. SERTRALINE [Concomitant]
     Active Substance: SERTRALINE HYDROCHLORIDE
  10. DOCUSATE [Concomitant]
     Active Substance: DOCUSATE
  11. POTASSIUM [Concomitant]
     Active Substance: POTASSIUM
  12. BUSPIRONE [Concomitant]
     Active Substance: BUSPIRONE HYDROCHLORIDE
  13. duloxetine Januvia [Concomitant]
  14. VESICARE [Concomitant]
     Active Substance: SOLIFENACIN SUCCINATE
  15. ASPIRIN [Concomitant]
     Active Substance: ASPIRIN
  16. BENADRYL [Concomitant]
     Active Substance: DIPHENHYDRAMINE HYDROCHLORIDE
  17. VITAMIN C [Concomitant]
     Active Substance: ASCORBIC ACID
  18. VITAMIN D NOS [Concomitant]
     Active Substance: VITAMIN D NOS
  19. vit b50 [Concomitant]
  20. VITAMIN E [Concomitant]
     Active Substance: .ALPHA.-TOCOPHEROL

REACTIONS (1)
  - Weight decreased [None]

NARRATIVE: CASE EVENT DATE: 20200513
